FAERS Safety Report 5943791-0 (Version None)
Quarter: 2008Q4

REPORT INFORMATION
  Report Type: 
  Country: None (occurrence: None)
  Receive Date: 20081106
  Receipt Date: 20081028
  Transmission Date: 20090506
  Serious: Yes (Disabling)
  Sender: FDA-Public Use
  Company Number: GB-PFIZER INC-2008091441

PATIENT
  Age: 62 Year
  Sex: Male

DRUGS (11)
  1. ATORVASTATIN CALCIUM [Suspect]
     Indication: HYPERLIPIDAEMIA
     Route: 048
     Dates: start: 20080707, end: 20080806
  2. BENDROFLUMETHIAZIDE [Concomitant]
  3. BISOPROLOL FUMARATE [Concomitant]
  4. DEXTROAMPHETAMINE SULFATE [Concomitant]
  5. FELODIPINE [Concomitant]
  6. HYOSCINE HBR HYT [Concomitant]
  7. LISINOPRIL [Concomitant]
  8. OMEPRAZOLE [Concomitant]
  9. ACETAMINOPHEN [Concomitant]
  10. PROPAFENONE HYDROCHLORIDE [Concomitant]
  11. SIMVASTATIN [Concomitant]

REACTIONS (5)
  - ASTHENIA [None]
  - FATIGUE [None]
  - HEARING IMPAIRED [None]
  - NAUSEA [None]
  - VISUAL IMPAIRMENT [None]
